FAERS Safety Report 9314136 (Version 2)
Quarter: 2013Q2

REPORT INFORMATION
  Report Type: Spontaneous
  Country: US (occurrence: US)
  Receive Date: 20130529
  Receipt Date: 20130628
  Transmission Date: 20140414
  Serious: No
  Sender: FDA-Public Use
  Company Number: US-JNJFOC-20130505865

PATIENT
  Age: 24 Year
  Sex: Male
  Weight: 74.84 kg

DRUGS (10)
  1. INVEGA SUSTENNA [Suspect]
     Indication: PSYCHOTIC DISORDER
     Route: 030
     Dates: start: 201204, end: 201206
  2. INVEGA SUSTENNA [Suspect]
     Indication: PSYCHOTIC DISORDER
     Route: 030
     Dates: start: 201201, end: 201201
  3. INVEGA SUSTENNA [Suspect]
     Indication: DEPRESSION
     Route: 030
     Dates: start: 201201, end: 201201
  4. INVEGA SUSTENNA [Suspect]
     Indication: DEPRESSION
     Route: 030
     Dates: start: 201204, end: 201206
  5. INVEGA [Suspect]
     Indication: PSYCHOTIC DISORDER
     Route: 048
     Dates: start: 201206
  6. INVEGA [Suspect]
     Indication: PSYCHOTIC DISORDER
     Route: 048
  7. INVEGA [Suspect]
     Indication: DEPRESSION
     Route: 048
  8. INVEGA [Suspect]
     Indication: DEPRESSION
     Route: 048
     Dates: start: 201206
  9. ABILIFY [Suspect]
     Indication: PSYCHOTIC DISORDER
     Route: 030
     Dates: start: 201204, end: 201204
  10. ABILIFY [Suspect]
     Indication: DEPRESSION
     Route: 030
     Dates: start: 201204, end: 201204

REACTIONS (5)
  - Hallucination [Recovered/Resolved]
  - Condition aggravated [Recovered/Resolved]
  - Drug ineffective [Not Recovered/Not Resolved]
  - Treatment noncompliance [Not Recovered/Not Resolved]
  - Off label use [Unknown]
